FAERS Safety Report 11089840 (Version 1)
Quarter: 2015Q2

REPORT INFORMATION
  Report Type: Spontaneous
  Country: US (occurrence: US)
  Receive Date: 20150505
  Receipt Date: 20150505
  Transmission Date: 20150821
  Serious: No
  Sender: FDA-Public Use
  Company Number: US-TARO-2015TAR00290

PATIENT
  Age: 70 Year
  Sex: Female

DRUGS (1)
  1. TOPICORT [Suspect]
     Active Substance: DESOXIMETASONE
     Indication: SKIN DISORDER

REACTIONS (1)
  - Drug ineffective [Unknown]
